FAERS Safety Report 24789586 (Version 1)
Quarter: 2024Q4

REPORT INFORMATION
  Report Type: Spontaneous
  Country: JP (occurrence: JP)
  Receive Date: 20241230
  Receipt Date: 20241230
  Transmission Date: 20250114
  Serious: Yes (Death, Other)
  Sender: ALEXION PHARMACEUTICALS
  Company Number: JP-ASTRAZENECA-240145423_064320_P_1

PATIENT

DRUGS (6)
  1. ANDEXXA [Suspect]
     Active Substance: ANDEXANET ALFA
     Indication: Gastrointestinal haemorrhage
     Dosage: 880 MILLIGRAM
  2. ANDEXXA [Suspect]
     Active Substance: ANDEXANET ALFA
     Dosage: 880 MILLIGRAM
     Route: 042
  3. ANDEXXA [Suspect]
     Active Substance: ANDEXANET ALFA
     Dosage: 880 MILLIGRAM
  4. ANDEXXA [Suspect]
     Active Substance: ANDEXANET ALFA
     Dosage: 880 MILLIGRAM
     Route: 042
  5. XARELTO [Concomitant]
     Active Substance: RIVAROXABAN
     Dosage: DOSE UNKNOWN
     Route: 048
  6. XARELTO [Concomitant]
     Active Substance: RIVAROXABAN
     Dosage: DOSE UNKNOWN

REACTIONS (2)
  - Myocardial infarction [Fatal]
  - Cardiogenic shock [Fatal]
